FAERS Safety Report 19276522 (Version 2)
Quarter: 2021Q3

REPORT INFORMATION
  Report Type: Spontaneous
  Country: US (occurrence: US)
  Receive Date: 20210519
  Receipt Date: 20210827
  Transmission Date: 20211014
  Serious: No
  Sender: FDA-Public Use
  Company Number: US-PHARMING-PHAUS2021000240

PATIENT

DRUGS (2)
  1. RUCONEST [Suspect]
     Active Substance: HUMAN C1-ESTERASE INHIBITOR
     Dosage: 3600 IU, EVERY TWO DAYS AND PRN
     Route: 042
     Dates: start: 20180409
  2. RUCONEST [Suspect]
     Active Substance: HUMAN C1-ESTERASE INHIBITOR
     Indication: HEREDITARY ANGIOEDEMA
     Dosage: 3600 IU, EVERY TWO DAYS AND AS NEEDED
     Route: 042
     Dates: start: 20180409

REACTIONS (1)
  - Intentional product use issue [Unknown]
